FAERS Safety Report 15559718 (Version 1)
Quarter: 2018Q4

REPORT INFORMATION
  Report Type: Spontaneous
  Country: FR (occurrence: FR)
  Receive Date: 20181029
  Receipt Date: 20181029
  Transmission Date: 20190205
  Serious: Yes (Other)
  Sender: FDA-Public Use
  Company Number: FR-ROCHE-2206201

PATIENT
  Sex: Male
  Weight: 90 kg

DRUGS (1)
  1. RIVOTRIL [Suspect]
     Active Substance: CLONAZEPAM
     Indication: NECK PAIN
     Dosage: UNIT DOSE: 5 [DRP]?RIVOTRIL 2,5 MG/ML, SOLUTION BUVABLE EN GOUTTE
     Route: 048
     Dates: start: 201102, end: 201211

REACTIONS (24)
  - Aggression [Recovered/Resolved]
  - Panic attack [Recovered/Resolved]
  - Weight decreased [Recovered/Resolved]
  - Photophobia [Recovered/Resolved]
  - Tachycardia [Recovered/Resolved]
  - Hyperhidrosis [Recovered/Resolved]
  - Abdominal pain upper [Recovered/Resolved]
  - Vertigo [Recovered/Resolved]
  - Tremor [Recovered/Resolved]
  - Disturbance in attention [Recovering/Resolving]
  - Irritability [Recovered/Resolved]
  - Memory impairment [Recovering/Resolving]
  - Affect lability [Not Recovered/Not Resolved]
  - Anxiety [Recovered/Resolved]
  - Decreased appetite [Recovered/Resolved]
  - Disorientation [Recovered/Resolved]
  - Accommodation disorder [Recovered/Resolved]
  - Alopecia [Recovered/Resolved]
  - Libido decreased [Recovered/Resolved]
  - Hallucinations, mixed [Recovered/Resolved]
  - Insomnia [Recovered/Resolved]
  - Presyncope [Recovered/Resolved]
  - Autophobia [Recovered/Resolved]
  - Extrasystoles [Recovered/Resolved]

NARRATIVE: CASE EVENT DATE: 201102
